FAERS Safety Report 4742493-6 (Version None)
Quarter: 2005Q3

REPORT INFORMATION
  Report Type: 
  Country: None (occurrence: None)
  Receive Date: 20050808
  Receipt Date: 20050726
  Transmission Date: 20060218
  Serious: Yes (Other)
  Sender: FDA-Public Use
  Company Number: USA0507103806

PATIENT
  Age: 27 Year
  Sex: Female

DRUGS (2)
  1. PROZAC [Suspect]
     Indication: ANXIETY
     Dosage: 10 MG
     Dates: start: 20030101
  2. RISPERDAL [Concomitant]

REACTIONS (4)
  - AMENORRHOEA [None]
  - DRUG INEFFECTIVE [None]
  - DRUG INTERACTION [None]
  - PITUITARY TUMOUR [None]
